FAERS Safety Report 10173461 (Version 1)
Quarter: 2014Q2

REPORT INFORMATION
  Report Type: Spontaneous
  Country: US (occurrence: None)
  Receive Date: 20140514
  Receipt Date: 20140514
  Transmission Date: 20141212
  Serious: Yes (Disabling, Other)
  Sender: FDA-Public Use
  Company Number: None

PATIENT
  Age: 72 Year
  Sex: Female
  Weight: 63.05 kg

DRUGS (1)
  1. CIMZIA [Suspect]
     Indication: RHEUMATOID ARTHRITIS
     Dates: start: 20140426

REACTIONS (11)
  - Respiratory disorder [None]
  - Pneumonia [None]
  - Cardiac failure [None]
  - Asthenia [None]
  - Mouth swelling [None]
  - Pain [None]
  - Myalgia [None]
  - Heart rate increased [None]
  - Dyspnoea [None]
  - Palpitations [None]
  - Muscle atrophy [None]
